FAERS Safety Report 18475623 (Version 1)
Quarter: 2020Q4

REPORT INFORMATION
  Report Type: Other
  Country: DE (occurrence: DE)
  Receive Date: 20201106
  Receipt Date: 20201106
  Transmission Date: 20210114
  Serious: Yes (Hospitalization)
  Sender: FDA-Public Use
  Company Number: DE-GE HEALTHCARE LIFE SCIENCES-2020CSU005579

PATIENT

DRUGS (2)
  1. ACCUPAQUE [Suspect]
     Active Substance: IOHEXOL
     Indication: PRODUCT USED FOR UNKNOWN INDICATION
  2. ACCUPAQUE [Suspect]
     Active Substance: IOHEXOL
     Indication: IMAGING PROCEDURE
     Dosage: 80 ML, SINGLE
     Route: 042
     Dates: start: 20200924, end: 20200924

REACTIONS (7)
  - Tetany [Unknown]
  - Dysaesthesia [Recovering/Resolving]
  - Dysarthria [Unknown]
  - Nausea [Recovering/Resolving]
  - Swollen tongue [Recovering/Resolving]
  - Dizziness [Recovering/Resolving]
  - Blood pressure decreased [Unknown]

NARRATIVE: CASE EVENT DATE: 20200924
